FAERS Safety Report 18624847 (Version 2)
Quarter: 2021Q2

REPORT INFORMATION
  Report Type: Spontaneous
  Country: US (occurrence: US)
  Receive Date: 20201216
  Receipt Date: 20210617
  Transmission Date: 20210717
  Serious: No
  Sender: FDA-Public Use
  Company Number: US-PFIZER INC-2016334044

PATIENT
  Age: 68 Year
  Sex: Male

DRUGS (25)
  1. NEURONTIN [Concomitant]
     Active Substance: GABAPENTIN
     Dosage: 1800 MG, 2X/DAY [3 TABLETS TWICE A DAY]
  2. NORCO [Concomitant]
     Active Substance: ACETAMINOPHEN\HYDROCODONE BITARTRATE
     Dosage: 1 TABLET, DAILY
     Route: 048
  3. ECOTRIN [Concomitant]
     Active Substance: ASPIRIN
     Dosage: 81 MG, DAILY
     Route: 048
  4. PRAVACHOL [Concomitant]
     Active Substance: PRAVASTATIN SODIUM
     Dosage: 80 MG, DAILY
     Route: 048
  5. VITAMIN D [ERGOCALCIFEROL] [Concomitant]
     Active Substance: ERGOCALCIFEROL
     Dosage: 50000 IU, WEEKLY
     Route: 048
  6. LYRICA [Suspect]
     Active Substance: PREGABALIN
     Indication: DIABETIC NEUROPATHY
  7. LYRICA [Suspect]
     Active Substance: PREGABALIN
     Indication: ARTHRALGIA
  8. LYRICA [Suspect]
     Active Substance: PREGABALIN
     Indication: PAIN IN EXTREMITY
     Dosage: 200 MG, 3X/DAY
     Route: 048
     Dates: start: 20160623, end: 2016
  9. LYRICA [Suspect]
     Active Substance: PREGABALIN
     Indication: ARTHRITIS
  10. STOOL SOFTENER (DOCUSATE) [Concomitant]
     Active Substance: DOCUSATE
     Dosage: 250 MG, DAILY
     Route: 048
  11. HUMALOG [Concomitant]
     Active Substance: INSULIN LISPRO
     Dosage: UNK [USE WITH SLIDING SCALE AS DIRECTED]
  12. VICTOZA [Concomitant]
     Active Substance: LIRAGLUTIDE
     Dosage: 1.2 MG, DAILY
     Route: 058
  13. DEPOTESTERONE CYPIONATE [Concomitant]
     Dosage: 1 ML, EVERY 14 DAYS
     Route: 030
  14. CYANOCOBALAMIN. [Concomitant]
     Active Substance: CYANOCOBALAMIN
     Dosage: 250 UG, DAILY
     Route: 048
  15. NORVASC [Concomitant]
     Active Substance: AMLODIPINE BESYLATE
     Dosage: 10 MG, DAILY
     Route: 048
  16. LASIX [Concomitant]
     Active Substance: FUROSEMIDE
     Dosage: 80 MG, DAILY
     Route: 048
  17. AVAPRO [Concomitant]
     Active Substance: IRBESARTAN
     Dosage: 300 MG, DAILY
     Route: 048
  18. LYRICA [Suspect]
     Active Substance: PREGABALIN
     Indication: PAIN
     Dosage: 200 MG, 3X/DAY
     Route: 048
     Dates: start: 20161111
  19. LYRICA [Suspect]
     Active Substance: PREGABALIN
     Indication: ARTHRALGIA
     Dosage: 200 MG, 3X/DAY
     Route: 048
     Dates: start: 20190122
  20. LYRICA [Suspect]
     Active Substance: PREGABALIN
     Indication: OSTEOARTHRITIS
  21. GLUCOSAMINE COMPLEX [CHONDROITIN SULFATE;GLUCOSAMINE] [Concomitant]
     Dosage: 200 MG
     Route: 048
  22. ACTOS [Concomitant]
     Active Substance: PIOGLITAZONE HYDROCHLORIDE
     Dosage: 15 MG, DAILY
     Route: 048
  23. LYRICA [Suspect]
     Active Substance: PREGABALIN
     Indication: JOINT INSTABILITY
  24. COREG [Concomitant]
     Active Substance: CARVEDILOL
     Dosage: 25 MG, 2X/DAY [WITH BREAKFAST AND DINNER]
     Route: 048
  25. LANTUS [Concomitant]
     Active Substance: INSULIN GLARGINE
     Dosage: 150 IU, 1X/DAY [AT BEDTIME]
     Route: 058

REACTIONS (2)
  - Impaired driving ability [Unknown]
  - Disturbance in attention [Unknown]
